FAERS Safety Report 8936001 (Version 1)
Quarter: 2012Q4

REPORT INFORMATION
  Report Type: 
  Country: US (occurrence: US)
  Receive Date: 20121130
  Receipt Date: 20121130
  Transmission Date: 20130627
  Serious: Yes (Hospitalization)
  Sender: FDA-Public Use
  Company Number: US-AMGEN-USASP2012076499

PATIENT
  Age: 66 Year
  Sex: Male

DRUGS (2)
  1. ARANESP [Suspect]
     Indication: ANAEMIA
     Dosage: 300 mug, UNK
     Dates: end: 20120830
  2. FOLFIRI [Concomitant]
     Indication: PANCREATIC CARCINOMA

REACTIONS (1)
  - Renal failure [Unknown]
